FAERS Safety Report 6278457-3 (Version None)
Quarter: 2009Q3

REPORT INFORMATION
  Report Type: 
  Country: None (occurrence: None)
  Receive Date: 20090722
  Receipt Date: 20090714
  Transmission Date: 20100115
  Serious: Yes (Other)
  Sender: FDA-Public Use
  Company Number: PHHY2009GB23829

PATIENT
  Sex: Male

DRUGS (6)
  1. IMATINIB MESYLATE [Suspect]
     Indication: GASTROINTESTINAL STROMAL TUMOUR
     Dosage: 400 MG, UNK
     Dates: start: 20070801, end: 20071001
  2. IMATINIB MESYLATE [Suspect]
     Dosage: 800 MG, UNK
     Dates: start: 20071022, end: 20090201
  3. SUNITINIB MALATE [Suspect]
     Dosage: 50 MG, UNK
     Dates: start: 20090302
  4. SUNITINIB MALATE [Suspect]
     Dosage: 37.5 MG, QD
  5. NAPROXEN [Concomitant]
  6. LANSOPRAZOLE [Concomitant]

REACTIONS (3)
  - DISEASE PROGRESSION [None]
  - HYPOGLYCAEMIA [None]
  - TREATMENT FAILURE [None]
